FAERS Safety Report 7818000-8 (Version None)
Quarter: 2011Q4

REPORT INFORMATION
  Report Type: 
  Country: None (occurrence: None)
  Receive Date: 20111017
  Receipt Date: 20111013
  Transmission Date: 20120403
  Serious: Yes (Hospitalization)
  Sender: FDA-Public Use
  Company Number: JP-EISAI INC-E2020-09841-SPO-JP

PATIENT
  Age: 87 Year
  Sex: Male

DRUGS (5)
  1. ARICEPT [Suspect]
     Route: 048
     Dates: start: 20090901, end: 20090928
  2. ARICEPT [Suspect]
     Route: 048
     Dates: start: 20110929, end: 20111013
  3. ARICEPT [Suspect]
     Route: 048
     Dates: start: 20090601, end: 20090625
  4. ARICEPT [Suspect]
     Route: 048
     Dates: start: 20090626, end: 20090831
  5. MEMANTINE HCL [Concomitant]
     Route: 048
     Dates: start: 20110628, end: 20110712

REACTIONS (3)
  - ECZEMA [None]
  - LOSS OF CONSCIOUSNESS [None]
  - ARRHYTHMIA [None]
